FAERS Safety Report 15509568 (Version 1)
Quarter: 2018Q4

REPORT INFORMATION
  Report Type: Spontaneous
  Country: US (occurrence: US)
  Receive Date: 20181015
  Receipt Date: 20181015
  Transmission Date: 20190205
  Serious: Yes (Other)
  Sender: FDA-Public Use
  Company Number: None

PATIENT
  Sex: Female
  Weight: 72.57 kg

DRUGS (1)
  1. MIRENA [Suspect]
     Active Substance: LEVONORGESTREL
     Dates: start: 20180614, end: 20180928

REACTIONS (6)
  - Weight increased [None]
  - Abdominal pain upper [None]
  - Discomfort [None]
  - Nausea [None]
  - Back pain [None]
  - Breast tenderness [None]
